FAERS Safety Report 9374439 (Version 1)
Quarter: 2013Q2

REPORT INFORMATION
  Report Type: Spontaneous
  Country: US (occurrence: US)
  Receive Date: 20130628
  Receipt Date: 20130628
  Transmission Date: 20140414
  Serious: No
  Sender: FDA-Public Use
  Company Number: US-PFIZER INC-2013190175

PATIENT
  Age: 70 Year
  Sex: Female

DRUGS (2)
  1. DOXYCYCLINE [Suspect]
  2. ERYTHROMYCIN [Suspect]

REACTIONS (1)
  - Drug hypersensitivity [Unknown]
